FAERS Safety Report 7950741-4 (Version None)
Quarter: 2011Q4

REPORT INFORMATION
  Report Type: 
  Country: None (occurrence: None)
  Receive Date: 20111125
  Receipt Date: 20111111
  Transmission Date: 20120403
  Serious: Yes (Hospitalization)
  Sender: FDA-Public Use
  Company Number: 2011SP053389

PATIENT
  Sex: Male

DRUGS (2)
  1. TEMODAR [Suspect]
  2. BACTRIM [Suspect]

REACTIONS (9)
  - NAUSEA [None]
  - CHILLS [None]
  - MYALGIA [None]
  - ERYTHEMA [None]
  - MALAISE [None]
  - PYREXIA [None]
  - LEUKOCYTOSIS [None]
  - HEADACHE [None]
  - HYPERTENSION [None]
